FAERS Safety Report 5197508-0 (Version None)
Quarter: 2006Q4

REPORT INFORMATION
  Report Type: 
  Country: None (occurrence: None)
  Receive Date: 20061228
  Receipt Date: 20061218
  Transmission Date: 20070319
  Serious: Yes (Death, Hospitalization)
  Sender: FDA-Public Use
  Company Number: 2006-151988-NL

PATIENT
  Age: 65 Year
  Sex: Male

DRUGS (8)
  1. MIRTAZAPINE [Suspect]
     Indication: ANXIETY
     Dosage: 15 MG/30 MG
     Route: 048
     Dates: start: 20061108, end: 20061126
  2. MIRTAZAPINE [Suspect]
     Indication: PAIN
     Dosage: 15 MG/30 MG
     Route: 048
     Dates: start: 20061108, end: 20061126
  3. MIRTAZAPINE [Suspect]
     Indication: ANXIETY
     Dosage: 15 MG/30 MG
     Route: 048
     Dates: start: 20061127, end: 20061207
  4. MIRTAZAPINE [Suspect]
     Indication: PAIN
     Dosage: 15 MG/30 MG
     Route: 048
     Dates: start: 20061127, end: 20061207
  5. ESCITALOPRAM OXALATE [Suspect]
     Indication: ANXIETY
     Dosage: 10 MG/20 MG
     Route: 048
     Dates: start: 20061108, end: 20061126
  6. ESCITALOPRAM OXALATE [Suspect]
     Indication: PAIN
     Dosage: 10 MG/20 MG
     Route: 048
     Dates: start: 20061108, end: 20061126
  7. ESCITALOPRAM OXALATE [Suspect]
     Indication: ANXIETY
     Dosage: 10 MG/20 MG
     Route: 048
     Dates: start: 20061127, end: 20061207
  8. ESCITALOPRAM OXALATE [Suspect]
     Indication: PAIN
     Dosage: 10 MG/20 MG
     Route: 048
     Dates: start: 20061127, end: 20061207

REACTIONS (6)
  - DELIRIUM TREMENS [None]
  - NEUROLEPTIC MALIGNANT SYNDROME [None]
  - NOSOCOMIAL INFECTION [None]
  - PSEUDOMONAS INFECTION [None]
  - RESPIRATORY FAILURE [None]
  - THERAPY NON-RESPONDER [None]
